FAERS Safety Report 22746314 (Version 4)
Quarter: 2023Q4

REPORT INFORMATION
  Report Type: Spontaneous
  Country: JP (occurrence: JP)
  Receive Date: 20230725
  Receipt Date: 20231117
  Transmission Date: 20240109
  Serious: Yes (Death, Hospitalization, Other)
  Sender: FDA-Public Use
  Company Number: JP-AMGEN-JPNSP2023128440

PATIENT
  Age: 85 Year
  Sex: Female
  Weight: 60 kg

DRUGS (24)
  1. EVENITY [Suspect]
     Active Substance: ROMOSOZUMAB-AQQG
     Indication: Osteoporosis
     Dosage: 210 MILLIGRAM, QMO
     Route: 058
     Dates: start: 20200624, end: 20200624
  2. ASPIRIN [Concomitant]
     Active Substance: ASPIRIN
     Dosage: 100 MILLIGRAM   (1 TABLET)
  3. FEBUXOSTAT [Concomitant]
     Active Substance: FEBUXOSTAT
     Dosage: 10 MILLIGRAM  (1 TABLET)
  4. ATORVASTATIN [Concomitant]
     Active Substance: ATORVASTATIN
     Dosage: 10 MILLIGRAM  (1 TABLET)
  5. ONEALFA [Concomitant]
     Active Substance: ALFACALCIDOL
     Dosage: 0.5 MICROGRAM (0.5 TABLET)
  6. SAMSCA [Concomitant]
     Active Substance: TOLVAPTAN
     Dosage: 7.5 MILLIGRAM  (2 TABLETS)
  7. TORSEMIDE [Concomitant]
     Active Substance: TORSEMIDE
     Dosage: 8 MILLIGRAM (1 TABLET)
  8. CILNIDIPINE [Concomitant]
     Active Substance: CILNIDIPINE
     Dosage: 10 MILLIGRAM  (2 TABLET)
  9. LEVOTHYROXINE SODIUM [Concomitant]
     Active Substance: LEVOTHYROXINE SODIUM
     Dosage: 50 MICROGRAM  (1 TABLET)
  10. CILOSTAZOL [Concomitant]
     Active Substance: CILOSTAZOL
     Dosage: 100 MILLIGRAM   (2 TABLET)
  11. TEGRETOL [Concomitant]
     Active Substance: CARBAMAZEPINE
     Dosage: 200 MILLIGRAM   (2 TABLET)
  12. TELMISARTAN [Concomitant]
     Active Substance: TELMISARTAN
     Dosage: 40 MILLIGRAM   (2 TABLET)
  13. DOXAZOSIN [Concomitant]
     Active Substance: DOXAZOSIN MESYLATE
     Dosage: 2 MILLIGRAM 4 TABLET (DIVIDED INTO TWO DOSES, AFTER BREAKFAST AND DINNER)
  14. FUROSEMIDE [Concomitant]
     Active Substance: FUROSEMIDE
     Dosage: 40MG 4 TABLETS (DIVIDED INTO 3  DOSES, 2 TABLETS IN MORNING, 1 TABLET AT NOON, 1 TABLET AT EVENING)
  15. SPIRONOLACTONE [Concomitant]
     Active Substance: SPIRONOLACTONE
     Dosage: 25 MILLIGRAM 3 TABLET (DIVIDED INTO THREE DOSES, AFTER BREAKFAST, LUNCH, AND DINNER)
  16. AMLODIPINE [Concomitant]
     Active Substance: AMLODIPINE BESYLATE
     Dosage: 5 MILLIGRAM,  (1 TABLET) QD AFTER DINNER
  17. SENNOSIDES [Concomitant]
     Active Substance: SENNOSIDES
     Dosage: 12 MILLIGRAM,  (3 TABLETS) QD BEFORE BEDTIME
  18. CALCIUM CARBONATE [Concomitant]
     Active Substance: CALCIUM CARBONATE
     Dosage: 500 MILLIGRAM,  (2 TABLETS) BID RIGHT AFTER BREAKFAST, LUNCH, DINNER
  19. ALDOMET [Concomitant]
     Active Substance: METHYLDOPA
     Dosage: 250 MILLIGRAM   (8 TABLETS) (DIVIDED INTO 3 DOSES 3 TAB IN MORNING, 3 TAB AT NOON, 2 TABLETS IN EVEN
  20. APRESOLINE HYDROCHLORIDE [Concomitant]
     Active Substance: HYDRALAZINE HYDROCHLORIDE
     Dosage: 10 MILLIGRAM, (3 TABLETS) DIVIDED INTO 3 DOSES AFTER BREAKFAST, LUNCH, DINNER
  21. LINEZOLID [Concomitant]
     Active Substance: LINEZOLID
     Dosage: 600 MILLIGRAM,  (2 TABLETS) BID  (EVERY 12 HOURS)
  22. TRESIBA [Concomitant]
     Active Substance: INSULIN DEGLUDEC
     Dosage: 6 UNITS
  23. SODIUM PICOSULFATE [Concomitant]
     Active Substance: SODIUM PICOSULFATE
     Dosage: 10 DROP, QD
  24. HYDRALAZINE [Concomitant]
     Active Substance: HYDRALAZINE HYDROCHLORIDE
     Dosage: UNK

REACTIONS (14)
  - Acute kidney injury [Fatal]
  - Urosepsis [Fatal]
  - Pneumonia [Fatal]
  - Multiple organ dysfunction syndrome [Fatal]
  - Immobilisation syndrome [Fatal]
  - Cardiac failure congestive [Recovered/Resolved]
  - Dysphagia [Unknown]
  - Urinary tract infection bacterial [Unknown]
  - Urinary tract infection fungal [Unknown]
  - Cellulitis staphylococcal [Unknown]
  - Hypothyroidism [Unknown]
  - Hip arthroplasty [Unknown]
  - Arteriosclerosis [Unknown]
  - Sleep apnoea syndrome [Unknown]

NARRATIVE: CASE EVENT DATE: 20200101
